FAERS Safety Report 10085792 (Version 1)
Quarter: 2014Q2

REPORT INFORMATION
  Report Type: Spontaneous
  Country: US (occurrence: None)
  Receive Date: 20140416
  Receipt Date: 20140416
  Transmission Date: 20141212
  Serious: Yes (Hospitalization)
  Sender: FDA-Public Use
  Company Number: AUR-APL-2009-00580

PATIENT
  Age: 58 Year
  Sex: Male

DRUGS (4)
  1. ATENOLOL [Suspect]
     Indication: WOLFF-PARKINSON-WHITE SYNDROME
     Route: 048
     Dates: start: 20070601
  2. DEPAKOTE [Concomitant]
  3. OLANZAPINE [Concomitant]
  4. SIMVASTATIN [Concomitant]

REACTIONS (4)
  - Hypotension [None]
  - Nasopharyngitis [None]
  - Pallor [None]
  - Cold sweat [None]
